FAERS Safety Report 20131329 (Version 2)
Quarter: 2021Q4

REPORT INFORMATION
  Report Type: Spontaneous
  Country: NL (occurrence: NL)
  Receive Date: 20211130
  Receipt Date: 20211217
  Transmission Date: 20220303
  Serious: Yes (Disabling)
  Sender: FDA-Public Use
  Company Number: NL-BAYER-2021A219159

PATIENT
  Age: 34 Year
  Sex: Male

DRUGS (1)
  1. CIPROFLOXACIN [Suspect]
     Active Substance: CIPROFLOXACIN
     Indication: Bacterial prostatitis
     Dosage: UNK
     Route: 048

REACTIONS (5)
  - Impaired work ability [Unknown]
  - Myalgia [Unknown]
  - Cold sweat [Unknown]
  - Somatic symptom disorder [Unknown]
  - Palpitations [Unknown]
